FAERS Safety Report 9328338 (Version 1)
Quarter: 2013Q2

REPORT INFORMATION
  Report Type: Spontaneous
  Country: US (occurrence: US)
  Receive Date: 20130604
  Receipt Date: 20130604
  Transmission Date: 20140414
  Serious: Yes (Other)
  Sender: FDA-Public Use
  Company Number: US-SANOFI-AVENTIS-2012SA058436

PATIENT
  Age: 77 Year
  Sex: Male
  Weight: 77.56 kg

DRUGS (6)
  1. LANTUS SOLOSTAR [Suspect]
     Indication: TYPE 2 DIABETES MELLITUS
     Dosage: DOSE:44 UNIT(S)
     Route: 058
  2. SOLOSTAR [Suspect]
     Indication: TYPE 2 DIABETES MELLITUS
  3. IRON [Concomitant]
     Dosage: TOOK ON MONDAY, WEDNESDAY, AND FRIDAY.
  4. LOSARTAN [Concomitant]
     Indication: BLOOD PRESSURE ABNORMAL
  5. PANTOPRAZOLE [Concomitant]
     Indication: GASTROOESOPHAGEAL REFLUX DISEASE
  6. ALL OTHER THERAPEUTIC PRODUCTS [Concomitant]

REACTIONS (3)
  - Hypoglycaemic unconsciousness [Unknown]
  - Hyperhidrosis [Unknown]
  - Blood glucose increased [Recovered/Resolved]
